FAERS Safety Report 5487807-7 (Version None)
Quarter: 2007Q4

REPORT INFORMATION
  Report Type: 
  Country: None (occurrence: None)
  Receive Date: 20071017
  Receipt Date: 20071004
  Transmission Date: 20080405
  Serious: Yes (Other)
  Sender: FDA-Public Use
  Company Number: US-BAYER-200713242BCC

PATIENT
  Age: 59 Year
  Sex: Female
  Weight: 86 kg

DRUGS (9)
  1. ONE A DAY WOMENS [Suspect]
     Indication: VITAMIN SUPPLEMENTATION
     Route: 048
     Dates: start: 20070101
  2. ASPIRIN [Suspect]
     Indication: DRUG USE FOR UNKNOWN INDICATION
     Dosage: TOTAL DAILY DOSE: 81 MG  UNIT DOSE: 81 MG
     Route: 048
     Dates: start: 20070101
  3. NORVASC [Concomitant]
  4. COREG [Concomitant]
  5. AVAPRO [Concomitant]
  6. ENALAPRIL MALEATE [Concomitant]
  7. AVANDIA [Concomitant]
  8. ALLOPURINOL [Concomitant]
  9. CALCIUM [Concomitant]

REACTIONS (1)
  - THYROID NEOPLASM [None]
